FAERS Safety Report 12812923 (Version 1)
Quarter: 2016Q4

REPORT INFORMATION
  Report Type: Spontaneous
  Country: US (occurrence: US)
  Receive Date: 20161006
  Receipt Date: 20161006
  Transmission Date: 20170207
  Serious: No
  Sender: FDA-Public Use
  Company Number: US-ASTRAZENECA-2016SF05449

PATIENT
  Age: 81 Year
  Sex: Male

DRUGS (3)
  1. PRILOSEC OTC [Suspect]
     Active Substance: OMEPRAZOLE MAGNESIUM
     Indication: GASTROOESOPHAGEAL REFLUX DISEASE
     Dosage: 2 TABLET, 1 /DAY FOR FIRST 10-12 DAYS
     Route: 048
  2. PRILOSEC OTC [Suspect]
     Active Substance: OMEPRAZOLE MAGNESIUM
     Indication: GASTROOESOPHAGEAL REFLUX DISEASE
     Dosage: 1 TABLET, 1 /DAY
     Route: 048
  3. ZANTAC [Concomitant]
     Active Substance: RANITIDINE HYDROCHLORIDE

REACTIONS (3)
  - Cardiac disorder [Recovered/Resolved]
  - Blood glucose increased [Not Recovered/Not Resolved]
  - Drug ineffective [Unknown]
